FAERS Safety Report 24077378 (Version 1)
Quarter: 2024Q3

REPORT INFORMATION
  Report Type: Spontaneous
  Country: US (occurrence: US)
  Receive Date: 20240711
  Receipt Date: 20240711
  Transmission Date: 20241017
  Serious: No
  Sender: PIERRE FABRE MEDICAMENT
  Company Number: US-PFM-2023-04301

PATIENT
  Sex: Female
  Weight: 53.991 kg

DRUGS (1)
  1. HEMANGEOL [Suspect]
     Active Substance: PROPRANOLOL HYDROCHLORIDE
     Indication: Haemangioma
     Dosage: 14.4 ML, BID (2/DAY)
     Route: 048

REACTIONS (3)
  - Haemangioma [Unknown]
  - Disease recurrence [Unknown]
  - Therapy interrupted [Unknown]
